FAERS Safety Report 4785834-6 (Version None)
Quarter: 2005Q3

REPORT INFORMATION
  Report Type: 
  Country: None (occurrence: None)
  Receive Date: 20050930
  Receipt Date: 20050120
  Transmission Date: 20060218
  Serious: Yes (Disabling)
  Sender: FDA-Public Use
  Company Number: 2005FR-00311

PATIENT
  Age: 84 Year
  Sex: Female

DRUGS (4)
  1. HELICLEAR        (AMOXICILLIN CLARITHROMYCIN LANSOPRAZOLE) [Suspect]
     Indication: HELICOBACTER INFECTION
     Dosage: HELICLEAR (AMOXICILLIN CLARITHROMYCIN LANSOPRAZOLE) BD ORAL
     Route: 048
     Dates: start: 20041123, end: 20041129
  2. ATORVASTATIN [Concomitant]
  3. CO-PROXAMOL [Concomitant]
  4. QUININE BISULPHATE [Concomitant]

REACTIONS (2)
  - ARTHRALGIA [None]
  - MYALGIA [None]
